FAERS Safety Report 6061503-X (Version None)
Quarter: 2009Q1

REPORT INFORMATION
  Report Type: 
  Country: None (occurrence: None)
  Receive Date: 20090202
  Receipt Date: 20090121
  Transmission Date: 20090719
  Serious: Yes (Other)
  Sender: FDA-Public Use
  Company Number: US-PFIZER INC-2009158940

PATIENT
  Age: 17 Year
  Sex: Male

DRUGS (7)
  1. METRONIDAZOLE AND METRONIDAZOLE BENZOATE AND METRONIDAZOLE HYDROCHLORI [Suspect]
     Dosage: 500 MG, 3X/DAY
  2. MERCAPTOPURINE [Concomitant]
     Dosage: 50 MG, 2X/DAY
  3. MESALAMINE [Concomitant]
     Dosage: 750 G, 3X/DAY
  4. ALENDRONATE SODIUM [Concomitant]
     Dosage: 10 MG, 1X/DAY
  5. OSCAL [Concomitant]
     Dosage: 500 MG, 1X/DAY
  6. OMEPRAZOLE [Concomitant]
     Dosage: 20 MG, 3X/DAY
  7. MINOCYCLINE HYDROCHLORIDE [Concomitant]
     Dosage: 100 MG, 3X/DAY

REACTIONS (4)
  - GAIT DISTURBANCE [None]
  - NEUROPATHY PERIPHERAL [None]
  - NUCLEAR MAGNETIC RESONANCE IMAGING BRAIN ABNORMAL [None]
  - TREMOR [None]
